FAERS Safety Report 5650568-2 (Version None)
Quarter: 2008Q1

REPORT INFORMATION
  Report Type: 
  Country: None (occurrence: None)
  Receive Date: 20080304
  Receipt Date: 20080304
  Transmission Date: 20080703
  Serious: Yes (Other)
  Sender: FDA-Public Use
  Company Number: None

PATIENT
  Age: 36 Year
  Sex: Female
  Weight: 58.0604 kg

DRUGS (2)
  1. VITAMIN B-12 [Suspect]
     Indication: VITAMIN B12 DEFICIENCY
     Dosage: 2  WEEKLY  PO
     Route: 048
     Dates: start: 20040707, end: 20040915
  2. FOLIC ACID [Suspect]
     Dosage: 1  WEEKLY  PO
     Route: 048
     Dates: start: 20040807, end: 20040915

REACTIONS (24)
  - ABNORMAL BEHAVIOUR [None]
  - ANAEMIA [None]
  - BODY TEMPERATURE INCREASED [None]
  - CARDIAC DISORDER [None]
  - CHEST PAIN [None]
  - DYSGEUSIA [None]
  - EAR PAIN [None]
  - EXERCISE LACK OF [None]
  - EXERCISE TOLERANCE DECREASED [None]
  - FATIGUE [None]
  - FOOD ALLERGY [None]
  - FORMICATION [None]
  - GINGIVAL RECESSION [None]
  - HYPERSENSITIVITY [None]
  - IMPAIRED WORK ABILITY [None]
  - NASAL ODOUR [None]
  - OTORRHOEA [None]
  - PALPITATIONS [None]
  - PARTNER STRESS [None]
  - TINNITUS [None]
  - URINARY TRACT INFECTION [None]
  - VEIN DISORDER [None]
  - VOMITING [None]
  - WEIGHT INCREASED [None]
